FAERS Safety Report 6055724-X (Version None)
Quarter: 2009Q1

REPORT INFORMATION
  Report Type: 
  Country: None (occurrence: None)
  Receive Date: 20090126
  Receipt Date: 20090113
  Transmission Date: 20090719
  Serious: Yes (Hospitalization)
  Sender: FDA-Public Use
  Company Number: RENA-1000357

PATIENT
  Age: 67 Year
  Sex: Male

DRUGS (14)
  1. RENAGEL [Suspect]
     Indication: HYPERPHOSPHATAEMIA
     Dosage: 1.75 G, TID, ORAL
     Route: 048
     Dates: start: 20061128, end: 20080703
  2. BONALON (ALENDRONIC ACID) TABLET, 5MG [Suspect]
     Indication: OSTEOPOROSIS
     Dosage: 5 MG, ORAL
     Route: 048
     Dates: start: 20080619, end: 20080703
  3. CINACALCET HYDROCHLORIDE (REGPARA) (CINACALCET HYDROCHLORIDE) TABLET [Suspect]
     Indication: DRUG USE FOR UNKNOWN INDICATION
     Dosage: 25 MG, QD, ORAL
     Route: 048
     Dates: start: 20080214, end: 20080416
  4. CINACALCET HYDROCHLORIDE (REGPARA) (CINACALCET HYDROCHLORIDE) TABLET [Suspect]
     Indication: DRUG USE FOR UNKNOWN INDICATION
     Dosage: 25 MG, QD, ORAL
     Route: 048
     Dates: start: 20080417, end: 20080707
  5. NOVEL ERYTHROPOIESIS STIMULATING PROTEIN (NOVEL ERYTHROPOIESIS STIMULA [Concomitant]
  6. OXAROL (MAXACALCITOL) INJECTION [Concomitant]
  7. VITACIMIN (ASCORBIC ACID) INJECTION [Concomitant]
  8. TETIPLINE (SACCHARATED FERRIC OXIDE) INJECTION [Concomitant]
  9. EURODIN (ESTAZOLAM) TABLET [Concomitant]
  10. PURSENNID (SENNOSIDE A+B, SENNOSIDE A+B CALCIUM) TABLET [Concomitant]
  11. OMEPRAL (OMEPRAZOLE) TABLET [Concomitant]
  12. BLOPRESS (CANDESARTAN CILEXETIL) TABLET [Concomitant]
  13. CARVEDILOL [Concomitant]
  14. EPOGIN (EPOETIN BETA) INJECTION [Concomitant]

REACTIONS (3)
  - DUODENAL ULCER [None]
  - GASTRIC ULCER HAEMORRHAGE [None]
  - HAEMODIALYSIS [None]
